FAERS Safety Report 7278273 (Version 6)
Quarter: 2014Q1

REPORT INFORMATION
  Report Type: Spontaneous
  Country: US (occurrence: US)
  Receive Date: 20100215
  Receipt Date: 20140310
  Transmission Date: 20141002
  Serious: Yes (Hospitalization)
  Sender: FDA-Public Use
  Company Number: US-BIOGENIDEC-2010BI004239

PATIENT
  Age: 46 Year
  Sex: Female

DRUGS (7)
  1. AVONEX [Suspect]
     Indication: MULTIPLE SCLEROSIS
     Route: 030
     Dates: start: 200809
  2. AVONEX [Suspect]
     Indication: MULTIPLE SCLEROSIS
     Route: 030
     Dates: start: 20081008, end: 20110722
  3. AVONEX [Suspect]
     Indication: MULTIPLE SCLEROSIS
     Route: 030
     Dates: end: 201108
  4. AMITRIPTYLINE [Concomitant]
     Indication: MIGRAINE
  5. PREVACID [Concomitant]
     Indication: PROPHYLAXIS
     Route: 048
  6. VITAMIN D [Concomitant]
     Indication: VITAMIN D DECREASED
  7. LEVOTHYROXINE [Concomitant]
     Indication: THYROID DISORDER

REACTIONS (7)
  - Multiple sclerosis [Unknown]
  - Intervertebral disc protrusion [Not Recovered/Not Resolved]
  - Intervertebral disc disorder [Recovered/Resolved]
  - Road traffic accident [Recovered/Resolved]
  - Accident at work [Recovered/Resolved]
  - Pain in extremity [Not Recovered/Not Resolved]
  - Neck injury [Unknown]
